FAERS Safety Report 8234409-5 (Version None)
Quarter: 2012Q1

REPORT INFORMATION
  Report Type: 
  Country: None (occurrence: None)
  Receive Date: 20120326
  Receipt Date: 20120315
  Transmission Date: 20120608
  Serious: Yes (Hospitalization)
  Sender: FDA-Public Use
  Company Number: US-PFIZER INC-2012052518

PATIENT
  Sex: Female

DRUGS (9)
  1. ATARAX [Concomitant]
  2. DIPROLENE AF [Concomitant]
  3. OMEPRAZOLE [Concomitant]
  4. LISINOPRIL [Concomitant]
  5. ETANERCEPT [Suspect]
     Indication: PSORIASIS
     Dosage: UNK
     Dates: end: 20090402
  6. ZOLOFT [Concomitant]
  7. LOVASTATIN [Concomitant]
  8. RIFAMPIN [Suspect]
  9. SEPTRA DS [Suspect]

REACTIONS (1)
  - HYPERSENSITIVITY [None]
